FAERS Safety Report 4421561-2 (Version None)
Quarter: 2004Q3

REPORT INFORMATION
  Report Type: 
  Country: None (occurrence: None)
  Receive Date: 20040809
  Receipt Date: 20040809
  Transmission Date: 20050211
  Serious: No
  Sender: FDA-Public Use
  Company Number: None

PATIENT
  Age: 28 Year
  Sex: Male

DRUGS (2)
  1. PREDNISONE [Suspect]
     Indication: PNEUMOCYSTIS CARINII PNEUMONIA
     Dosage: 40 MG BID
     Dates: start: 20040222, end: 20040224
  2. METHYLPREDNISOLONE [Suspect]
     Dosage: X1

REACTIONS (1)
  - PSYCHOTIC DISORDER [None]
